FAERS Safety Report 15714053 (Version 1)
Quarter: 2018Q4

REPORT INFORMATION
  Report Type: Spontaneous
  Country: CA (occurrence: CA)
  Receive Date: 20181212
  Receipt Date: 20181212
  Transmission Date: 20190205
  Serious: Yes (Other)
  Sender: FDA-Public Use
  Company Number: CA-PFIZER INC-2018218632

PATIENT
  Age: 54 Year
  Sex: Female

DRUGS (31)
  1. SULFASALAZINE. [Concomitant]
     Active Substance: SULFASALAZINE
     Indication: RHEUMATOID ARTHRITIS
     Dosage: 1 G, 2X/DAY
     Dates: start: 20170106
  2. SULFASALAZINE. [Concomitant]
     Active Substance: SULFASALAZINE
     Dosage: 1 G, 2X/DAY
     Dates: start: 20180305, end: 20180501
  3. SEROQUEL [Concomitant]
     Active Substance: QUETIAPINE FUMARATE
     Dosage: 25 MG, 1X/DAY (AT BEDTIME)
     Route: 048
  4. NAPROXEN. [Concomitant]
     Active Substance: NAPROXEN
     Dosage: 1 TABLET TWICE DAILY AS REQUIRED
     Dates: start: 20180703, end: 20180729
  5. DULOXETINE. [Concomitant]
     Active Substance: DULOXETINE
     Dosage: TAKE 1 CAPSULE  (60MG) ONCE DAILY ALONG WITH 30 MG CAPSULE (TOTAL DOSE IS 90MG)
     Dates: start: 20180718
  6. GABAPENTIN. [Concomitant]
     Active Substance: GABAPENTIN
     Dosage: 800 MG, 3X/DAY
     Dates: start: 20180322
  7. GABAPENTIN. [Concomitant]
     Active Substance: GABAPENTIN
     Dosage: 800 MG, 3X/DAY
     Dates: start: 20180729
  8. TYLENOL ARTHRITIS PAIN [Concomitant]
     Active Substance: ACETAMINOPHEN
     Dosage: UNK
  9. DULOXETINE. [Concomitant]
     Active Substance: DULOXETINE
     Dosage: TAKE 1 CAPSULE  (60MG) ONCE DAILY ALONG WITH 30 MG CAPSULE (TOTAL DOSE IS 90MG)
     Dates: start: 20180409
  10. DULOXETINE. [Concomitant]
     Active Substance: DULOXETINE
     Dosage: TAKE 1 CAPSULE  (60MG) ONCE DAILY ALONG WITH 30 MG CAPSULE (TOTAL DOSE IS 90MG)
     Dates: start: 20180819
  11. XELJANZ [Suspect]
     Active Substance: TOFACITINIB CITRATE
     Indication: RHEUMATOID ARTHRITIS
     Dosage: 5 MG, 2X/DAY
     Route: 048
     Dates: start: 20180422, end: 20180504
  12. SULFASALAZINE. [Concomitant]
     Active Substance: SULFASALAZINE
     Dosage: 1 G, 2X/DAY
     Dates: start: 20180703, end: 20180826
  13. SULFASALAZINE. [Concomitant]
     Active Substance: SULFASALAZINE
     Dosage: 1 G, 2X/DAY
     Dates: start: 20180104, end: 20180828
  14. CYMBALTA [Concomitant]
     Active Substance: DULOXETINE HYDROCHLORIDE
     Dosage: 1 CAPSULE ONCE DAILY ALONG WITH 30 MG CAPSULE
     Route: 048
  15. CRESTOR [Concomitant]
     Active Substance: ROSUVASTATIN CALCIUM
     Dosage: 20 MG, 1X/DAY
     Route: 048
  16. CAFFEINE CITRATE/CODEINE PHOSPHATE/PARACETAMOL [Concomitant]
     Dosage: 1 OR 2 TABLETS EVERY 4 TO 6 HOURS AS REQUIRED
     Dates: start: 20180831
  17. ESOMEPRAZOLE MAGNESIUM/NAPROXEN [Concomitant]
     Dosage: 1 TABLET TWICE DAILY AS REQUIRED
     Dates: start: 20180905, end: 20180905
  18. XELJANZ [Suspect]
     Active Substance: TOFACITINIB CITRATE
     Dosage: 5 MG, 2X/DAY
     Route: 048
     Dates: start: 20180504
  19. SULFASALAZINE. [Concomitant]
     Active Substance: SULFASALAZINE
     Dosage: UNK
  20. CRESTOR [Concomitant]
     Active Substance: ROSUVASTATIN CALCIUM
     Dosage: 1 DF, 1X/DAY
     Dates: start: 20180417, end: 20180812
  21. EFINACONAZOLE [Concomitant]
     Active Substance: EFINACONAZOLE
     Dosage: APPLY ONCE DAILY TO NAILS
     Dates: start: 20171212, end: 20180514
  22. CRESTOR [Concomitant]
     Active Substance: ROSUVASTATIN CALCIUM
     Dosage: 1 DF, 1X/DAY
     Dates: start: 20171019, end: 20180116
  23. FOLIC ACID. [Concomitant]
     Active Substance: FOLIC ACID
     Dosage: 5 MG, WEEKLY (24 HOURS FROM MTX DOSE)
     Route: 048
     Dates: end: 201809
  24. DULOXETINE. [Concomitant]
     Active Substance: DULOXETINE
     Dosage: 1 CAPSULE  (60MG) ONCE DAILY ALONG WITH 30 MG CAPSULE (TOTAL DOSE IS 90MG)
     Dates: start: 20180314
  25. ESOMEPRAZOLE MAGNESIUM/NAPROXEN [Concomitant]
     Dosage: 1 TABLET TWICE DAILY AS REQUIRED
     Dates: start: 20180703, end: 20180729
  26. CYMBALTA [Concomitant]
     Active Substance: DULOXETINE HYDROCHLORIDE
     Dosage: 1 CAPSULE ONCE DAILY ALONG WITH 60 MG CAPSULE
  27. ACTONEL [Concomitant]
     Active Substance: RISEDRONATE SODIUM
     Dosage: 35 MG, WEEKLY
     Route: 048
     Dates: start: 20180416
  28. QUETIAPINE. [Concomitant]
     Active Substance: QUETIAPINE
     Dosage: 1 TABLET EVERY NIGHT AT BEDTIME
     Dates: start: 20180731
  29. QUETIAPINE. [Concomitant]
     Active Substance: QUETIAPINE
     Dosage: 1 TABLET EVERY NIGHT AT BEDTIME
     Dates: start: 20180131, end: 20180501
  30. FOLIC ACID. [Concomitant]
     Active Substance: FOLIC ACID
     Dosage: 1 DF, WEEKLY TAKE 24 HOURS FROM METHTOREXATE DOSE
     Dates: start: 20171227, end: 20180703
  31. NAPROXEN. [Concomitant]
     Active Substance: NAPROXEN
     Dosage: 1 DF, 2X/DAY
     Dates: start: 20180905, end: 20180905

REACTIONS (7)
  - Insomnia [Not Recovered/Not Resolved]
  - Polymyalgia rheumatica [Not Recovered/Not Resolved]
  - Dysstasia [Unknown]
  - Fatigue [Unknown]
  - Sleep apnoea syndrome [Unknown]
  - Drug ineffective [Not Recovered/Not Resolved]
  - Gait disturbance [Unknown]

NARRATIVE: CASE EVENT DATE: 201810
